FAERS Safety Report 7260305-6 (Version None)
Quarter: 2011Q1

REPORT INFORMATION
  Report Type: 
  Country: None (occurrence: None)
  Receive Date: 20110130
  Receipt Date: 20101112
  Transmission Date: 20110831
  Serious: No
  Sender: FDA-Public Use
  Company Number: US-ABBOTT-10P-163-0670337-00

PATIENT
  Sex: Female
  Weight: 108.96 kg

DRUGS (5)
  1. PREVACID [Concomitant]
     Indication: BARRETT'S OESOPHAGUS
  2. TOPROL-XL [Concomitant]
     Indication: TACHYCARDIA
  3. HUMIRA [Suspect]
     Indication: RHEUMATOID ARTHRITIS
     Dates: start: 20080101
  4. NEURONTIN [Concomitant]
     Indication: RHEUMATOID ARTHRITIS
  5. UNKNOWN MUSCLE RELAXER [Concomitant]
     Indication: MUSCLE RELAXANT THERAPY

REACTIONS (3)
  - INJECTION SITE HAEMATOMA [None]
  - DRUG DOSE OMISSION [None]
  - DEVICE MALFUNCTION [None]
